FAERS Safety Report 7960929-4 (Version None)
Quarter: 2011Q4

REPORT INFORMATION
  Report Type: 
  Country: None (occurrence: None)
  Receive Date: 20111202
  Receipt Date: 20111117
  Transmission Date: 20120403
  Serious: Yes (Congenital Anomaly, Other)
  Sender: FDA-Public Use
  Company Number: NSR_00314_2011

PATIENT
  Age: 35 Year
  Sex: Female

DRUGS (3)
  1. MULTI-VITAMINS [Concomitant]
  2. ALLOPURINOL [Suspect]
     Indication: PROPHYLAXIS
     Dosage: (300 MG QD)
  3. METHYLDOPA [Concomitant]

REACTIONS (5)
  - MATERNAL EXPOSURE DURING PREGNANCY [None]
  - PREGNANCY [None]
  - ANTEPARTUM HAEMORRHAGE [None]
  - CAESAREAN SECTION [None]
  - ABNORMAL LABOUR [None]
